FAERS Safety Report 4304428-X (Version None)
Quarter: 2004Q1

REPORT INFORMATION
  Report Type: 
  Country: None (occurrence: None)
  Receive Date: 20040224
  Receipt Date: 20040217
  Transmission Date: 20041129
  Serious: Yes (Hospitalization, Other)
  Sender: FDA-Public Use
  Company Number: 2004199480US

PATIENT
  Sex: Male
  Weight: 93 kg

DRUGS (4)
  1. CELEBREX [Suspect]
     Indication: OSTEOARTHRITIS
     Dosage: QD ORAL
     Route: 048
  2. ACCURETIC (QUINAPRIL HYDROCHLORIDE) [Concomitant]
  3. ALEVE [Concomitant]
  4. ROFECOXIB [Concomitant]

REACTIONS (3)
  - CARDIAC DISORDER [None]
  - CHEST PAIN [None]
  - DYSPEPSIA [None]
